FAERS Safety Report 6771448-5 (Version None)
Quarter: 2010Q2

REPORT INFORMATION
  Report Type: 
  Country: None (occurrence: None)
  Receive Date: 20100616
  Receipt Date: 20100511
  Transmission Date: 20101027
  Serious: Yes (Death, Other)
  Sender: FDA-Public Use
  Company Number: US-BAXTER-2010BH004109

PATIENT
  Age: 6 Day
  Sex: Female
  Weight: 2 kg

DRUGS (3)
  1. HEPARIN SODIUM [Suspect]
     Indication: THROMBOSIS
     Route: 042
     Dates: start: 20081001
  2. HEPARIN SODIUM [Suspect]
     Indication: CARDIAC ELECTROPHYSIOLOGIC STUDY
     Route: 042
     Dates: start: 20081001
  3. HEPARIN SODIUM [Suspect]
     Indication: CATHETERISATION CARDIAC
     Route: 042
     Dates: start: 20081001

REACTIONS (11)
  - CARDIO-RESPIRATORY DISTRESS [None]
  - CONVULSION [None]
  - EAR HAEMORRHAGE [None]
  - EPISTAXIS [None]
  - HYPERKALAEMIA [None]
  - HYPOTENSION [None]
  - NECROTISING COLITIS [None]
  - ORGAN FAILURE [None]
  - PURPURA NEONATAL [None]
  - RECTAL HAEMORRHAGE [None]
  - TRUNCUS ARTERIOSUS PERSISTENT [None]
